FAERS Safety Report 7531504-0 (Version None)
Quarter: 2011Q2

REPORT INFORMATION
  Report Type: 
  Country: None (occurrence: None)
  Receive Date: 20110608
  Receipt Date: 20110530
  Transmission Date: 20111010
  Serious: Yes (Hospitalization)
  Sender: FDA-Public Use
  Company Number: SI-GENZYME-FABR-1001766

PATIENT
  Sex: Male
  Weight: 62 kg

DRUGS (12)
  1. LACIDIPINE [Concomitant]
     Indication: CEREBROVASCULAR DISORDER
     Dosage: 6 MG, UNK
     Dates: start: 20100101
  2. LANTHANUM CARBONATE [Concomitant]
     Indication: RENAL DISORDER
     Dosage: 500 MG, UNK
     Dates: start: 20100101
  3. DIOSMIN [Concomitant]
     Indication: CEREBROVASCULAR DISORDER
     Dosage: UNK
     Dates: start: 20090101
  4. FABRAZYME [Suspect]
     Dosage: 17.5 MG, Q2W
     Route: 042
     Dates: start: 20100914, end: 20101124
  5. LEVOTHYROXINE SODIUM [Concomitant]
     Indication: ENDOCRINE DISORDER
     Dosage: UNK
     Dates: start: 20100101
  6. FABRAZYME [Suspect]
     Dosage: 35 MG, Q2W
     Route: 042
     Dates: start: 20100104, end: 20100901
  7. CALCIUM CARBONATE [Concomitant]
     Indication: RENAL DISORDER
     Dosage: UNK
     Dates: start: 20040101
  8. FABRAZYME [Suspect]
     Indication: FABRY'S DISEASE
     Dosage: 35 MG, Q2W
     Route: 042
     Dates: start: 20101208
  9. ASPIRIN [Concomitant]
     Indication: CEREBROVASCULAR DISORDER
     Dosage: 100 MG, QD
     Dates: start: 20090101
  10. ESCITALOPRAM [Concomitant]
     Indication: MENTAL DISORDER
     Dosage: UNK
     Dates: start: 20100101
  11. FABRAZYME [Suspect]
     Dosage: 70 MG, Q2W
     Route: 042
     Dates: start: 20040629, end: 20100104
  12. RAMIPRIL [Concomitant]
     Indication: CEREBROVASCULAR DISORDER
     Dosage: 10 MG, UNK
     Dates: start: 20040101

REACTIONS (4)
  - KIDNEY TRANSPLANT REJECTION [None]
  - SEPSIS [None]
  - RENAL DISORDER [None]
  - INFLAMMATION [None]
